FAERS Safety Report 19626915 (Version 1)
Quarter: 2021Q3

REPORT INFORMATION
  Report Type: Spontaneous
  Country: US (occurrence: US)
  Receive Date: 20210728
  Receipt Date: 20210728
  Transmission Date: 20211014
  Serious: Yes (Hospitalization)
  Sender: FDA-Public Use
  Company Number: None

PATIENT
  Age: 59 Year
  Sex: Female
  Weight: 64.8 kg

DRUGS (3)
  1. HERCEPTIN [Suspect]
     Active Substance: TRASTUZUMAB
     Dates: end: 20210706
  2. TAXOL [Suspect]
     Active Substance: PACLITAXEL
     Dates: end: 20210614
  3. PERTUZUMAB. [Suspect]
     Active Substance: PERTUZUMAB
     Dates: end: 20210706

REACTIONS (2)
  - Pulmonary congestion [None]
  - Anaemia [None]

NARRATIVE: CASE EVENT DATE: 20210721
